FAERS Safety Report 8669403 (Version 2)
Quarter: 2013Q4

REPORT INFORMATION
  Report Type: Spontaneous
  Country: US (occurrence: US)
  Receive Date: 20120717
  Receipt Date: 20131003
  Transmission Date: 20140711
  Serious: No
  Sender: FDA-Public Use
  Company Number: US-009507513-1206USA05379

PATIENT
  Age: 43 Year
  Sex: Female

DRUGS (3)
  1. MAXALT MLT [Suspect]
     Indication: MIGRAINE
     Dosage: 10 MG, UNK
     Route: 060
     Dates: start: 201112
  2. OMNARIS [Concomitant]
  3. LACTAID [Concomitant]

REACTIONS (1)
  - Abdominal pain [Not Recovered/Not Resolved]
